FAERS Safety Report 22684071 (Version 9)
Quarter: 2024Q3

REPORT INFORMATION
  Report Type: Report from Study
  Country: CA (occurrence: CA)
  Receive Date: 20230709
  Receipt Date: 20240920
  Transmission Date: 20241017
  Serious: Yes (Hospitalization, Other)
  Sender: IPSEN
  Company Number: CA-KOREA IPSEN Pharma-2022-35020

PATIENT
  Age: 60 Year
  Sex: Female

DRUGS (11)
  1. LANREOTIDE ACETATE [Suspect]
     Active Substance: LANREOTIDE ACETATE
     Indication: Gastroenteropancreatic neuroendocrine tumour disease
     Route: 058
     Dates: start: 20221123
  2. LANREOTIDE ACETATE [Suspect]
     Active Substance: LANREOTIDE ACETATE
     Indication: Carcinoid syndrome
  3. CELLCEPT [Concomitant]
     Active Substance: MYCOPHENOLATE MOFETIL
  4. PREDNISONE [Concomitant]
     Active Substance: PREDNISONE
  5. TACROLIMUS [Concomitant]
     Active Substance: TACROLIMUS
  6. LIPITOR [Concomitant]
     Active Substance: ATORVASTATIN CALCIUM
  7. VASOTEC [Concomitant]
     Active Substance: ENALAPRIL MALEATE
  8. AMLODIPINE [Concomitant]
     Active Substance: AMLODIPINE BESYLATE
  9. ALENDRONATE [Concomitant]
     Active Substance: ALENDRONATE SODIUM
     Dates: end: 202403
  10. ENALAPRIL [Concomitant]
     Active Substance: ENALAPRIL
  11. ATORVASTATIN [Concomitant]
     Active Substance: ATORVASTATIN

REACTIONS (18)
  - Bradycardia [Not Recovered/Not Resolved]
  - Pancreatic disorder [Recovered/Resolved]
  - Asthenia [Recovered/Resolved]
  - Dehydration [Recovered/Resolved]
  - Malignant neoplasm progression [Not Recovered/Not Resolved]
  - Diabetes mellitus [Not Recovered/Not Resolved]
  - Malignant neoplasm progression [Unknown]
  - Diarrhoea [Recovered/Resolved]
  - Fatigue [Recovered/Resolved]
  - Blood glucose increased [Not Recovered/Not Resolved]
  - Blood glucose increased [Recovered/Resolved]
  - Sciatica [Not Recovered/Not Resolved]
  - Musculoskeletal stiffness [Recovered/Resolved]
  - Platelet count decreased [Recovered/Resolved]
  - Cardiac murmur [Not Recovered/Not Resolved]
  - Fatigue [Not Recovered/Not Resolved]
  - Malaise [Not Recovered/Not Resolved]
  - Therapy interrupted [Unknown]

NARRATIVE: CASE EVENT DATE: 20221123
